FAERS Safety Report 5736625-0 (Version None)
Quarter: 2008Q2

REPORT INFORMATION
  Report Type: 
  Country: None (occurrence: None)
  Receive Date: 20080513
  Receipt Date: 20080506
  Transmission Date: 20081010
  Serious: Yes (Other)
  Sender: FDA-Public Use
  Company Number: DE-ASTRAZENECA-2008AC01160

PATIENT
  Age: 91 Year
  Sex: Male
  Weight: 57 kg

DRUGS (7)
  1. MEPIVACAINE HCL [Suspect]
     Indication: BURSITIS
     Route: 053
  2. MEPIVACAINE HCL [Suspect]
     Indication: NERVE BLOCK
     Route: 053
  3. PRILOCAINE [Suspect]
     Indication: NERVE BLOCK
     Route: 053
  4. PRILOCAINE [Suspect]
     Route: 053
  5. AMBROXOL-HCL [Concomitant]
  6. OMEPRAZOLE [Concomitant]
  7. ESOMEPRAZOLE MAGNESIUM [Concomitant]

REACTIONS (2)
  - CARDIOTOXICITY [None]
  - NERVOUS SYSTEM DISORDER [None]
